FAERS Safety Report 6105649-6 (Version None)
Quarter: 2009Q1

REPORT INFORMATION
  Report Type: 
  Country: None (occurrence: None)
  Receive Date: 20090306
  Receipt Date: 20090306
  Transmission Date: 20090719
  Serious: Yes (Life-Threatening, Hospitalization)
  Sender: FDA-Public Use
  Company Number: PHHO1999IT04703

PATIENT
  Sex: Male
  Weight: 102 kg

DRUGS (3)
  1. SIMULECT [Suspect]
     Route: 042
     Dates: start: 19990909
  2. ACTIVE CONTROL A.C. [Suspect]
  3. NEORAL [Suspect]

REACTIONS (3)
  - ARTERIAL THROMBOSIS [None]
  - NEPHROPATHY TOXIC [None]
  - RENAL FAILURE ACUTE [None]
